FAERS Safety Report 18929678 (Version 4)
Quarter: 2021Q2

REPORT INFORMATION
  Report Type: Report from Study
  Country: None (occurrence: US)
  Receive Date: 20210223
  Receipt Date: 20210521
  Transmission Date: 20210717
  Serious: Yes (Hospitalization, Other)
  Sender: FDA-Public Use
  Company Number: US-ABBVIE-21K-163-3785244-00

PATIENT
  Age: 72 Year
  Sex: Male
  Weight: 93.07 kg

DRUGS (9)
  1. PAROXETINE. [Concomitant]
     Active Substance: PAROXETINE
     Indication: PRODUCT USED FOR UNKNOWN INDICATION
     Route: 048
  2. RYTARY [Concomitant]
     Active Substance: CARBIDOPA\LEVODOPA
     Indication: PRODUCT USED FOR UNKNOWN INDICATION
     Dosage: 48375 MG/195 MG
     Route: 048
  3. CLOZEPAM [Concomitant]
     Indication: PRODUCT USED FOR UNKNOWN INDICATION
     Route: 048
  4. COVID VACCINE [Concomitant]
     Dosage: MFR: PFIZER
     Route: 030
     Dates: start: 20210221, end: 20210221
  5. DUOPA [Suspect]
     Active Substance: CARBIDOPA\LEVODOPA
     Indication: PARKINSON^S DISEASE
     Route: 050
     Dates: start: 20160216
  6. LORAZEPAM. [Concomitant]
     Active Substance: LORAZEPAM
     Indication: PRODUCT USED FOR UNKNOWN INDICATION
     Route: 048
  7. DUOPA [Suspect]
     Active Substance: CARBIDOPA\LEVODOPA
     Route: 050
  8. MEMANTINE. [Concomitant]
     Active Substance: MEMANTINE
     Indication: PRODUCT USED FOR UNKNOWN INDICATION
     Route: 048
  9. COVID VACCINE [Concomitant]
     Indication: COVID-19 IMMUNISATION
     Dosage: MFR: PFIZER
     Route: 030
     Dates: start: 20210131, end: 20210131

REACTIONS (9)
  - Gastrointestinal tube insertion [Unknown]
  - Weight decreased [Unknown]
  - On and off phenomenon [Unknown]
  - Fall [Unknown]
  - Device dislocation [Unknown]
  - Mental disorder [Unknown]
  - Stoma site haemorrhage [Unknown]
  - Embedded device [Not Recovered/Not Resolved]
  - Dementia [Not Recovered/Not Resolved]

NARRATIVE: CASE EVENT DATE: 2019
